FAERS Safety Report 9912192 (Version 1)
Quarter: 2014Q1

REPORT INFORMATION
  Report Type: Spontaneous
  Country: US (occurrence: US)
  Receive Date: 20140220
  Receipt Date: 20140220
  Transmission Date: 20141002
  Serious: No
  Sender: FDA-Public Use
  Company Number: US-009507513-1402USA005513

PATIENT
  Sex: Female
  Weight: 123.81 kg

DRUGS (4)
  1. IMPLANON [Suspect]
     Indication: CONTRACEPTION
     Dosage: 68MG
     Route: 059
     Dates: start: 20121012
  2. TRAZODONE HYDROCHLORIDE [Concomitant]
  3. BENADRYL [Concomitant]
  4. BISOPROLOL [Concomitant]

REACTIONS (1)
  - Menorrhagia [Not Recovered/Not Resolved]
